FAERS Safety Report 16172572 (Version 1)
Quarter: 2019Q2

REPORT INFORMATION
  Report Type: Spontaneous
  Country: MX (occurrence: MX)
  Receive Date: 20190409
  Receipt Date: 20190409
  Transmission Date: 20190711
  Serious: Yes (Death, Other)
  Sender: FDA-Public Use
  Company Number: MX-ASTELLAS-2019US014771

PATIENT
  Age: 65 Year
  Sex: Male

DRUGS (3)
  1. TACROLIMUS. [Suspect]
     Active Substance: TACROLIMUS
     Indication: LUNG TRANSPLANT
     Dosage: 5 MG, UNKNOWN FREQ. (ADMINISTERED BEFORE PROCEDURE)
     Route: 065
  2. MYCOPHENOLATE MOFETIL. [Concomitant]
     Active Substance: MYCOPHENOLATE MOFETIL
     Indication: LUNG TRANSPLANT
     Route: 065
  3. TACROLIMUS. [Suspect]
     Active Substance: TACROLIMUS
     Dosage: UNK, UNKNOWN FREQ.
     Route: 065

REACTIONS (4)
  - Thrombotic microangiopathy [Fatal]
  - Pulmonary alveolar haemorrhage [Fatal]
  - Product use in unapproved indication [Unknown]
  - Acute kidney injury [Not Recovered/Not Resolved]
